FAERS Safety Report 5801002-0 (Version None)
Quarter: 2008Q3

REPORT INFORMATION
  Report Type: 
  Country: None (occurrence: None)
  Receive Date: 20080702
  Receipt Date: 20080619
  Transmission Date: 20090109
  Serious: Yes (Hospitalization, Other)
  Sender: FDA-Public Use
  Company Number: 2008AL007468

PATIENT
  Age: 82 Year
  Sex: Male
  Weight: 63.5036 kg

DRUGS (1)
  1. DIGOXIN [Suspect]
     Dosage: QD, PO
     Route: 048
     Dates: start: 20060101

REACTIONS (4)
  - DIZZINESS [None]
  - FALL [None]
  - JOINT INJURY [None]
  - RIB FRACTURE [None]
